FAERS Safety Report 5491383-2 (Version None)
Quarter: 2007Q4

REPORT INFORMATION
  Report Type: 
  Country: None (occurrence: None)
  Receive Date: 20071018
  Receipt Date: 20071004
  Transmission Date: 20080405
  Serious: Yes (Other)
  Sender: FDA-Public Use
  Company Number: ALA_00022_2007

PATIENT
  Age: 16 Year
  Sex: Female

DRUGS (2)
  1. ROWASA [Suspect]
     Indication: DRUG USE FOR UNKNOWN INDICATION
     Dosage: (2000 MG ORAL)
     Route: 048
     Dates: start: 20070726, end: 20070820
  2. DELURSAN [Concomitant]

REACTIONS (2)
  - ABDOMINAL PAIN UPPER [None]
  - LIPASE INCREASED [None]
